FAERS Safety Report 14389282 (Version 3)
Quarter: 2020Q3

REPORT INFORMATION
  Report Type: Spontaneous
  Country: US (occurrence: US)
  Receive Date: 20180115
  Receipt Date: 20200810
  Transmission Date: 20201102
  Serious: Yes (Other)
  Sender: FDA-Public Use
  Company Number: US-SA-2017SA240342

PATIENT

DRUGS (11)
  1. SYNTHROID [Concomitant]
     Active Substance: LEVOTHYROXINE SODIUM
     Dosage: UNK UNK,UNK
     Route: 065
     Dates: start: 2011
  2. HYDRALAZINE [Concomitant]
     Active Substance: HYDRALAZINE HYDROCHLORIDE
     Dosage: UNK UNK,UNK
     Route: 065
     Dates: start: 2000
  3. SIMVASTATIN. [Concomitant]
     Active Substance: SIMVASTATIN
     Dosage: UNK UNK,UNK
     Route: 065
     Dates: start: 2000
  4. NEOSAR [Concomitant]
     Active Substance: CYCLOPHOSPHAMIDE
  5. CYTOXAN [Concomitant]
     Active Substance: CYCLOPHOSPHAMIDE
  6. SIMVASTATIN. [Concomitant]
     Active Substance: SIMVASTATIN
  7. DOCETAXEL. [Suspect]
     Active Substance: DOCETAXEL
     Dosage: 125 MG,Q3W
     Route: 042
     Dates: start: 20111027, end: 20111027
  8. ALPRAZOLAM. [Concomitant]
     Active Substance: ALPRAZOLAM
     Dosage: UNK UNK,UNK
     Route: 065
     Dates: start: 2000
  9. CLONIDINE. [Concomitant]
     Active Substance: CLONIDINE
  10. DOCETAXEL. [Suspect]
     Active Substance: DOCETAXEL
     Dosage: 125 MG,Q3W
     Route: 042
     Dates: start: 20120301, end: 20120301
  11. OMEPRAZOLE. [Concomitant]
     Active Substance: OMEPRAZOLE
     Dosage: UNK UNK,UNK
     Route: 065
     Dates: start: 2002

REACTIONS (2)
  - Psychological trauma [Unknown]
  - Alopecia [Recovering/Resolving]

NARRATIVE: CASE EVENT DATE: 201111
